FAERS Safety Report 7533630-9 (Version None)
Quarter: 2011Q2

REPORT INFORMATION
  Report Type: 
  Country: None (occurrence: None)
  Receive Date: 20110608
  Receipt Date: 20060314
  Transmission Date: 20111010
  Serious: Yes (Other)
  Sender: FDA-Public Use
  Company Number: PHNU2006AU01338

PATIENT
  Sex: Male

DRUGS (1)
  1. CLOZAPINE [Suspect]
     Dosage: UP TO 400 MG/DAY
     Route: 048
     Dates: start: 20020801

REACTIONS (2)
  - DILATATION ATRIAL [None]
  - ECHOCARDIOGRAM [None]
